FAERS Safety Report 6217036-0 (Version None)
Quarter: 2009Q2

REPORT INFORMATION
  Report Type: 
  Country: None (occurrence: None)
  Receive Date: 20090604
  Receipt Date: 20090601
  Transmission Date: 20091009
  Serious: Yes (Death)
  Sender: FDA-Public Use
  Company Number: 2009SP011085

PATIENT
  Age: 24 Year
  Sex: Female

DRUGS (2)
  1. TEMODAL [Suspect]
     Indication: GLIOMA
     Dosage: ; QD; PO
     Route: 048
     Dates: start: 20090401, end: 20090501
  2. TEMODAL [Suspect]
     Indication: RECURRENT CANCER
     Dosage: ; QD; PO
     Route: 048
     Dates: start: 20090401, end: 20090501

REACTIONS (3)
  - DRUG INEFFECTIVE [None]
  - MALIGNANT GLIOMA [None]
  - MALIGNANT NEOPLASM PROGRESSION [None]
